FAERS Safety Report 6964068-0 (Version None)
Quarter: 2010Q3

REPORT INFORMATION
  Report Type: 
  Country: None (occurrence: None)
  Receive Date: 20100831
  Receipt Date: 20100816
  Transmission Date: 20110219
  Serious: Yes (Hospitalization, Other)
  Sender: FDA-Public Use
  Company Number: AUR-APL-2010-02138

PATIENT
  Age: 70 Year
  Sex: Male
  Weight: 75 kg

DRUGS (11)
  1. LISINOPRIL [Suspect]
     Indication: PRODUCT USED FOR UNKNOWN INDICATION
     Dosage: ORAL
     Route: 048
     Dates: end: 20090626
  2. METOPROLOL TARTRATE [Suspect]
     Indication: PRODUCT USED FOR UNKNOWN INDICATION
     Dates: end: 20090626
  3. EPLERENONE [Suspect]
     Indication: CARDIAC FAILURE
     Dosage: ORAL
     Route: 048
     Dates: start: 20081006, end: 20090625
  4. FUROSEMIDE [Suspect]
     Indication: PRODUCT USED FOR UNKNOWN INDICATION
     Dosage: 80MG, BID, ORAL
     Route: 048
     Dates: start: 20080201, end: 20090625
  5. ISOSORBIDE MONONITRATE [Concomitant]
  6. VALSARTAN [Concomitant]
  7. ACETYLSALICYLIC ACID [Concomitant]
  8. THYRAX [Concomitant]
  9. METFORMIN HYDROCHLORIDE [Concomitant]
  10. SPIRIVA [Concomitant]
  11. EFFEXOR [Concomitant]

REACTIONS (5)
  - CARDIAC FAILURE [None]
  - CONDITION AGGRAVATED [None]
  - DRUG INTERACTION [None]
  - MALAISE [None]
  - RENAL FAILURE [None]
